FAERS Safety Report 22022358 (Version 1)
Quarter: 2023Q1

REPORT INFORMATION
  Report Type: Spontaneous
  Country: US (occurrence: US)
  Receive Date: 20230222
  Receipt Date: 20230222
  Transmission Date: 20230417
  Serious: No
  Sender: FDA-Public Use
  Company Number: US-BAYER-2023A016256

PATIENT

DRUGS (5)
  1. NAPROXEN SODIUM [Suspect]
     Active Substance: NAPROXEN SODIUM
  2. ALLOPURINOL [Suspect]
     Active Substance: ALLOPURINOL
  3. IRBESARTAN [Suspect]
     Active Substance: IRBESARTAN
  4. AMLODIPINE [Suspect]
     Active Substance: AMLODIPINE BESYLATE
  5. OMEPRAZOLE [Suspect]
     Active Substance: OMEPRAZOLE

REACTIONS (3)
  - Rash papular [Unknown]
  - Rash [Unknown]
  - Bone pain [Unknown]
